FAERS Safety Report 9251422 (Version 1)
Quarter: 2013Q2

REPORT INFORMATION
  Report Type: Spontaneous
  Country: US (occurrence: US)
  Receive Date: 20130424
  Receipt Date: 20130424
  Transmission Date: 20140414
  Serious: Yes (Other)
  Sender: FDA-Public Use
  Company Number: US-PFIZER INC-2013124108

PATIENT
  Sex: Female

DRUGS (2)
  1. ZOLOFT [Suspect]
     Indication: ANXIETY
     Dosage: 25 MG, UNK
  2. ZOLOFT [Suspect]
     Dosage: 50 MG, UNK
     Dates: end: 201304

REACTIONS (7)
  - Paraesthesia [Not Recovered/Not Resolved]
  - Hypoaesthesia [Not Recovered/Not Resolved]
  - Blepharospasm [Not Recovered/Not Resolved]
  - Heart rate increased [Unknown]
  - Disorientation [Not Recovered/Not Resolved]
  - Tremor [Unknown]
  - Dizziness [Unknown]
